FAERS Safety Report 8480015-7 (Version None)
Quarter: 2012Q2

REPORT INFORMATION
  Report Type: 
  Country: None (occurrence: None)
  Receive Date: 20120629
  Receipt Date: 20120629
  Transmission Date: 20120825
  Serious: Yes (Life-Threatening, Other)
  Sender: FDA-Public Use
  Company Number: FR-ROCHE-1079216

PATIENT
  Age: 48 Year
  Sex: Male

DRUGS (3)
  1. MABTHERA [Suspect]
     Indication: WEGENER'S GRANULOMATOSIS
     Route: 042
  2. PREDNISONE TAB [Suspect]
     Indication: WEGENER'S GRANULOMATOSIS
     Route: 048
  3. BACTRIM [Suspect]
     Indication: WEGENER'S GRANULOMATOSIS
     Route: 048

REACTIONS (5)
  - MALAISE [None]
  - CHILLS [None]
  - INFUSION RELATED REACTION [None]
  - HYPOTENSION [None]
  - VASOCONSTRICTION [None]
